FAERS Safety Report 25990872 (Version 1)
Quarter: 2025Q4

REPORT INFORMATION
  Report Type: Spontaneous
  Country: EU (occurrence: EU)
  Receive Date: 20251103
  Receipt Date: 20251103
  Transmission Date: 20260117
  Serious: Yes (Death, Life-Threatening, Hospitalization, Other)
  Sender: MYLAN
  Company Number: None

PATIENT
  Age: 44 Year
  Sex: Female
  Weight: 60 kg

DRUGS (80)
  1. CELECOXIB [Interacting]
     Active Substance: CELECOXIB
     Indication: Product used for unknown indication
     Dosage: 2 DOSAGE FORM, QD (2X1)
     Dates: start: 20250907, end: 20250909
  2. CELECOXIB [Interacting]
     Active Substance: CELECOXIB
     Dosage: 2 DOSAGE FORM, QD (2X1)
     Route: 065
     Dates: start: 20250907, end: 20250909
  3. CELECOXIB [Interacting]
     Active Substance: CELECOXIB
     Dosage: 2 DOSAGE FORM, QD (2X1)
     Route: 065
     Dates: start: 20250907, end: 20250909
  4. CELECOXIB [Interacting]
     Active Substance: CELECOXIB
     Dosage: 2 DOSAGE FORM, QD (2X1)
     Dates: start: 20250907, end: 20250909
  5. CLARITHROMYCIN [Interacting]
     Active Substance: CLARITHROMYCIN
     Indication: Product used for unknown indication
     Dosage: 2 DOSAGE FORM, TOTAL (0-0-2)
     Dates: start: 20250909, end: 20250909
  6. CLARITHROMYCIN [Interacting]
     Active Substance: CLARITHROMYCIN
     Dosage: 2 DOSAGE FORM, TOTAL (0-0-2)
     Dates: start: 20250909, end: 20250909
  7. CLARITHROMYCIN [Interacting]
     Active Substance: CLARITHROMYCIN
     Dosage: 2 DOSAGE FORM, TOTAL (0-0-2)
     Route: 065
     Dates: start: 20250909, end: 20250909
  8. CLARITHROMYCIN [Interacting]
     Active Substance: CLARITHROMYCIN
     Dosage: 2 DOSAGE FORM, TOTAL (0-0-2)
     Route: 065
     Dates: start: 20250909, end: 20250909
  9. CLARITHROMYCIN [Interacting]
     Active Substance: CLARITHROMYCIN
     Dosage: 2 DOSAGE FORM, TOTAL (2-0-0)
     Dates: start: 20250910, end: 20250910
  10. CLARITHROMYCIN [Interacting]
     Active Substance: CLARITHROMYCIN
     Dosage: 2 DOSAGE FORM, TOTAL (2-0-0)
     Dates: start: 20250910, end: 20250910
  11. CLARITHROMYCIN [Interacting]
     Active Substance: CLARITHROMYCIN
     Dosage: 2 DOSAGE FORM, TOTAL (2-0-0)
     Route: 065
     Dates: start: 20250910, end: 20250910
  12. CLARITHROMYCIN [Interacting]
     Active Substance: CLARITHROMYCIN
     Dosage: 2 DOSAGE FORM, TOTAL (2-0-0)
     Route: 065
     Dates: start: 20250910, end: 20250910
  13. TRABECTEDIN [Interacting]
     Active Substance: TRABECTEDIN
     Indication: Leiomyosarcoma
     Dosage: 2.43 MILLIGRAM, TOTAL (6TH CYCLE)
     Dates: start: 20250910
  14. TRABECTEDIN [Interacting]
     Active Substance: TRABECTEDIN
     Dosage: 2.43 MILLIGRAM, TOTAL (6TH CYCLE)
     Route: 065
     Dates: start: 20250910
  15. TRABECTEDIN [Interacting]
     Active Substance: TRABECTEDIN
     Dosage: 2.43 MILLIGRAM, TOTAL (6TH CYCLE)
     Route: 065
     Dates: start: 20250910
  16. TRABECTEDIN [Interacting]
     Active Substance: TRABECTEDIN
     Dosage: 2.43 MILLIGRAM, TOTAL (6TH CYCLE)
     Dates: start: 20250910
  17. CURCUMIN [Interacting]
     Active Substance: CURCUMIN
     Indication: Product used for unknown indication
     Dosage: 40 DOSAGE FORM, TOTAL (20-40 - 0 ? 20)
     Dates: start: 20250910, end: 20250910
  18. CURCUMIN [Interacting]
     Active Substance: CURCUMIN
     Dosage: 40 DOSAGE FORM, TOTAL (20-40 - 0 ? 20)
     Route: 065
     Dates: start: 20250910, end: 20250910
  19. CURCUMIN [Interacting]
     Active Substance: CURCUMIN
     Dosage: 40 DOSAGE FORM, TOTAL (20-40 - 0 ? 20)
     Route: 065
     Dates: start: 20250910, end: 20250910
  20. CURCUMIN [Interacting]
     Active Substance: CURCUMIN
     Dosage: 40 DOSAGE FORM, TOTAL (20-40 - 0 ? 20)
     Dates: start: 20250910, end: 20250910
  21. MILK THISTLE [Interacting]
     Active Substance: MILK THISTLE
     Indication: Product used for unknown indication
     Dosage: 2 DOSAGE FORM, QD (0 - 0 ? 2)
     Dates: start: 20250909, end: 20250909
  22. MILK THISTLE [Interacting]
     Active Substance: MILK THISTLE
     Dosage: 2 DOSAGE FORM, QD (0 - 0 ? 2)
     Dates: start: 20250909, end: 20250909
  23. MILK THISTLE [Interacting]
     Active Substance: MILK THISTLE
     Dosage: 2 DOSAGE FORM, QD (0 - 0 ? 2)
     Route: 065
     Dates: start: 20250909, end: 20250909
  24. MILK THISTLE [Interacting]
     Active Substance: MILK THISTLE
     Dosage: 2 DOSAGE FORM, QD (0 - 0 ? 2)
     Route: 065
     Dates: start: 20250909, end: 20250909
  25. MILK THISTLE [Interacting]
     Active Substance: MILK THISTLE
     Dosage: 10 DOSAGE FORM, QD (5 -0-5)
     Dates: start: 20250910, end: 20250910
  26. MILK THISTLE [Interacting]
     Active Substance: MILK THISTLE
     Dosage: 10 DOSAGE FORM, QD (5 -0-5)
     Dates: start: 20250910, end: 20250910
  27. MILK THISTLE [Interacting]
     Active Substance: MILK THISTLE
     Dosage: 10 DOSAGE FORM, QD (5 -0-5)
     Route: 065
     Dates: start: 20250910, end: 20250910
  28. MILK THISTLE [Interacting]
     Active Substance: MILK THISTLE
     Dosage: 10 DOSAGE FORM, QD (5 -0-5)
     Route: 065
     Dates: start: 20250910, end: 20250910
  29. MILK THISTLE [Interacting]
     Active Substance: MILK THISTLE
     Dosage: 4 DOSAGE FORM, QD (2X2)
     Dates: start: 20250914
  30. MILK THISTLE [Interacting]
     Active Substance: MILK THISTLE
     Dosage: 4 DOSAGE FORM, QD (2X2)
     Route: 065
     Dates: start: 20250914
  31. MILK THISTLE [Interacting]
     Active Substance: MILK THISTLE
     Dosage: 4 DOSAGE FORM, QD (2X2)
     Dates: start: 20250914
  32. MILK THISTLE [Interacting]
     Active Substance: MILK THISTLE
     Dosage: 4 DOSAGE FORM, QD (2X2)
     Route: 065
     Dates: start: 20250914
  33. NEULASTA [Concomitant]
     Active Substance: PEGFILGRASTIM
     Dosage: 6 MILLIGRAM, TOTAL
     Dates: start: 20250910
  34. NEULASTA [Concomitant]
     Active Substance: PEGFILGRASTIM
     Dosage: 6 MILLIGRAM, TOTAL
     Route: 058
     Dates: start: 20250910
  35. NEULASTA [Concomitant]
     Active Substance: PEGFILGRASTIM
     Dosage: 6 MILLIGRAM, TOTAL
     Route: 058
     Dates: start: 20250910
  36. NEULASTA [Concomitant]
     Active Substance: PEGFILGRASTIM
     Dosage: 6 MILLIGRAM, TOTAL
     Dates: start: 20250910
  37. DIETARY SUPPLEMENT [Concomitant]
     Active Substance: DIETARY SUPPLEMENT
     Dosage: 4 DOSAGE FORM, QD (2X 2 OVER AT LEAST 5 DAYS)
     Dates: start: 20250911
  38. DIETARY SUPPLEMENT [Concomitant]
     Active Substance: DIETARY SUPPLEMENT
     Dosage: 4 DOSAGE FORM, QD (2X 2 OVER AT LEAST 5 DAYS)
     Route: 065
     Dates: start: 20250911
  39. DIETARY SUPPLEMENT [Concomitant]
     Active Substance: DIETARY SUPPLEMENT
     Dosage: 4 DOSAGE FORM, QD (2X 2 OVER AT LEAST 5 DAYS)
     Route: 065
     Dates: start: 20250911
  40. DIETARY SUPPLEMENT [Concomitant]
     Active Substance: DIETARY SUPPLEMENT
     Dosage: 4 DOSAGE FORM, QD (2X 2 OVER AT LEAST 5 DAYS)
     Dates: start: 20250911
  41. LEVOTHYROXINE SODIUM [Concomitant]
     Active Substance: LEVOTHYROXINE SODIUM
     Dosage: 125 MICROGRAM, QD (1-0-0)
  42. LEVOTHYROXINE SODIUM [Concomitant]
     Active Substance: LEVOTHYROXINE SODIUM
     Dosage: 125 MICROGRAM, QD (1-0-0)
     Route: 065
  43. LEVOTHYROXINE SODIUM [Concomitant]
     Active Substance: LEVOTHYROXINE SODIUM
     Dosage: 125 MICROGRAM, QD (1-0-0)
     Route: 065
  44. LEVOTHYROXINE SODIUM [Concomitant]
     Active Substance: LEVOTHYROXINE SODIUM
     Dosage: 125 MICROGRAM, QD (1-0-0)
  45. ELIQUIS [Concomitant]
     Active Substance: APIXABAN
     Dosage: 5 MILLIGRAM, QD (1-0-0)
  46. ELIQUIS [Concomitant]
     Active Substance: APIXABAN
     Dosage: 5 MILLIGRAM, QD (1-0-0)
     Route: 065
  47. ELIQUIS [Concomitant]
     Active Substance: APIXABAN
     Dosage: 5 MILLIGRAM, QD (1-0-0)
     Route: 065
  48. ELIQUIS [Concomitant]
     Active Substance: APIXABAN
     Dosage: 5 MILLIGRAM, QD (1-0-0)
  49. XGEVA [Concomitant]
     Active Substance: DENOSUMAB
     Dosage: UNK
  50. XGEVA [Concomitant]
     Active Substance: DENOSUMAB
     Dosage: UNK
     Route: 065
  51. XGEVA [Concomitant]
     Active Substance: DENOSUMAB
     Dosage: UNK
     Route: 065
  52. XGEVA [Concomitant]
     Active Substance: DENOSUMAB
     Dosage: UNK
  53. ZYPREXA [Concomitant]
     Active Substance: OLANZAPINE
     Dosage: UNK
  54. ZYPREXA [Concomitant]
     Active Substance: OLANZAPINE
     Dosage: UNK
     Route: 065
  55. ZYPREXA [Concomitant]
     Active Substance: OLANZAPINE
     Dosage: UNK
     Route: 065
  56. ZYPREXA [Concomitant]
     Active Substance: OLANZAPINE
     Dosage: UNK
  57. ZOFRAN [Concomitant]
     Active Substance: ONDANSETRON HYDROCHLORIDE
     Dosage: UNK
  58. ZOFRAN [Concomitant]
     Active Substance: ONDANSETRON HYDROCHLORIDE
     Dosage: UNK
     Route: 065
  59. ZOFRAN [Concomitant]
     Active Substance: ONDANSETRON HYDROCHLORIDE
     Dosage: UNK
     Route: 065
  60. ZOFRAN [Concomitant]
     Active Substance: ONDANSETRON HYDROCHLORIDE
     Dosage: UNK
  61. Paspertin [Concomitant]
     Dosage: UNK
  62. Paspertin [Concomitant]
     Dosage: UNK
     Route: 065
  63. Paspertin [Concomitant]
     Dosage: UNK
     Route: 065
  64. Paspertin [Concomitant]
     Dosage: UNK
  65. Novalgin [Concomitant]
     Dosage: UNK
  66. Novalgin [Concomitant]
     Dosage: UNK
     Route: 065
  67. Novalgin [Concomitant]
     Dosage: UNK
     Route: 065
  68. Novalgin [Concomitant]
     Dosage: UNK
  69. CALCIUM CARBONATE\CHOLECALCIFEROL [Concomitant]
     Active Substance: CALCIUM CARBONATE\CHOLECALCIFEROL
     Dosage: UNK (500 MG/800 I.E.)
  70. CALCIUM CARBONATE\CHOLECALCIFEROL [Concomitant]
     Active Substance: CALCIUM CARBONATE\CHOLECALCIFEROL
     Dosage: UNK (500 MG/800 I.E.)
     Route: 065
  71. CALCIUM CARBONATE\CHOLECALCIFEROL [Concomitant]
     Active Substance: CALCIUM CARBONATE\CHOLECALCIFEROL
     Dosage: UNK (500 MG/800 I.E.)
     Route: 065
  72. CALCIUM CARBONATE\CHOLECALCIFEROL [Concomitant]
     Active Substance: CALCIUM CARBONATE\CHOLECALCIFEROL
     Dosage: UNK (500 MG/800 I.E.)
  73. TIZANIDINE [Concomitant]
     Active Substance: TIZANIDINE
     Dosage: UNK
  74. TIZANIDINE [Concomitant]
     Active Substance: TIZANIDINE
     Dosage: UNK
     Route: 065
  75. TIZANIDINE [Concomitant]
     Active Substance: TIZANIDINE
     Dosage: UNK
     Route: 065
  76. TIZANIDINE [Concomitant]
     Active Substance: TIZANIDINE
     Dosage: UNK
  77. DEXIBUPROFEN [Concomitant]
     Active Substance: DEXIBUPROFEN
     Dosage: 800 MILLIGRAM, QD (1-0-1 FOR 3 DAYS INITIALLY)
  78. DEXIBUPROFEN [Concomitant]
     Active Substance: DEXIBUPROFEN
     Dosage: 800 MILLIGRAM, QD (1-0-1 FOR 3 DAYS INITIALLY)
     Route: 065
  79. DEXIBUPROFEN [Concomitant]
     Active Substance: DEXIBUPROFEN
     Dosage: 800 MILLIGRAM, QD (1-0-1 FOR 3 DAYS INITIALLY)
     Route: 065
  80. DEXIBUPROFEN [Concomitant]
     Active Substance: DEXIBUPROFEN
     Dosage: 800 MILLIGRAM, QD (1-0-1 FOR 3 DAYS INITIALLY)

REACTIONS (30)
  - Multiple organ dysfunction syndrome [Fatal]
  - Product prescribing error [Fatal]
  - Labelled drug-drug interaction medication error [Fatal]
  - Anuria [Not Recovered/Not Resolved]
  - Pancytopenia [Not Recovered/Not Resolved]
  - Transaminases increased [Not Recovered/Not Resolved]
  - Hepatic failure [Not Recovered/Not Resolved]
  - Blood bilirubin abnormal [Not Recovered/Not Resolved]
  - Acute hepatic failure [Not Recovered/Not Resolved]
  - Blood lactic acid increased [Not Recovered/Not Resolved]
  - Septic shock [Not Recovered/Not Resolved]
  - Vasoplegia syndrome [Not Recovered/Not Resolved]
  - Cardiomyopathy [Not Recovered/Not Resolved]
  - Suspected drug-induced liver injury [Not Recovered/Not Resolved]
  - Thrombosis [Recovered/Resolved]
  - Acute respiratory distress syndrome [Not Recovered/Not Resolved]
  - Ascites [Not Recovered/Not Resolved]
  - Pleural effusion [Not Recovered/Not Resolved]
  - Hypervolaemia [Not Recovered/Not Resolved]
  - Acute kidney injury [Not Recovered/Not Resolved]
  - Intussusception [Not Recovered/Not Resolved]
  - Mechanical ileus [Not Recovered/Not Resolved]
  - Azotaemia [Not Recovered/Not Resolved]
  - Generalised oedema [Not Recovered/Not Resolved]
  - Labelled drug-drug interaction issue [Not Recovered/Not Resolved]
  - Citrobacter infection [Not Recovered/Not Resolved]
  - Jejunectomy [Recovered/Resolved]
  - Candida infection [Not Recovered/Not Resolved]
  - Faecal vomiting [Not Recovered/Not Resolved]
  - Inflammatory marker increased [Not Recovered/Not Resolved]

NARRATIVE: CASE EVENT DATE: 20250920
